FAERS Safety Report 12947772 (Version 1)
Quarter: 2016Q4

REPORT INFORMATION
  Report Type: Spontaneous
  Country: FR (occurrence: FR)
  Receive Date: 20161116
  Receipt Date: 20161116
  Transmission Date: 20170207
  Serious: Yes (Life-Threatening, Hospitalization)
  Sender: FDA-Public Use
  Company Number: FR-JNJFOC-20161110470

PATIENT
  Age: 66 Year
  Sex: Male

DRUGS (5)
  1. RISPERDAL [Suspect]
     Active Substance: RISPERIDONE
     Indication: PRODUCT USED FOR UNKNOWN INDICATION
     Route: 048
     Dates: start: 201608
  2. IMOVANE [Concomitant]
     Active Substance: ZOPICLONE
     Route: 065
  3. RISPERDAL [Suspect]
     Active Substance: RISPERIDONE
     Indication: PRODUCT USED FOR UNKNOWN INDICATION
     Route: 048
     Dates: end: 201610
  4. METFORMIN [Suspect]
     Active Substance: METFORMIN HYDROCHLORIDE
     Indication: PRODUCT USED FOR UNKNOWN INDICATION
     Route: 048
     Dates: end: 201610
  5. LOXAPAC [Suspect]
     Active Substance: LOXAPINE SUCCINATE
     Indication: ANXIETY
     Dosage: 1-3 TABLETS
     Route: 048
     Dates: end: 201610

REACTIONS (8)
  - Suicide attempt [Unknown]
  - Diabetic coma [Recovered/Resolved]
  - Pneumonia aspiration [Unknown]
  - Acute kidney injury [Unknown]
  - Rhabdomyolysis [Unknown]
  - Abnormal behaviour [Unknown]
  - Lactic acidosis [Unknown]
  - Renal tubular necrosis [Unknown]

NARRATIVE: CASE EVENT DATE: 201608
